FAERS Safety Report 5107484-4 (Version None)
Quarter: 2006Q3

REPORT INFORMATION
  Report Type: 
  Country: None (occurrence: None)
  Receive Date: 20060919
  Receipt Date: 20060907
  Transmission Date: 20061208
  Serious: Yes (Other)
  Sender: FDA-Public Use
  Company Number: PHBS2006IT13809

PATIENT
  Age: 77 Year
  Sex: Male

DRUGS (4)
  1. PAMIDRONATE DISODIUM [Suspect]
     Indication: LUNG NEOPLASM MALIGNANT
     Route: 065
  2. ZOLEDRONIC ACID [Suspect]
     Indication: LUNG NEOPLASM MALIGNANT
     Route: 065
  3. GEMCITABINE [Concomitant]
     Route: 065
  4. CARBOPLATIN [Concomitant]
     Route: 065

REACTIONS (2)
  - INFECTION [None]
  - OSTEONECROSIS [None]
